FAERS Safety Report 25769366 (Version 1)
Quarter: 2025Q3

REPORT INFORMATION
  Report Type: Spontaneous
  Country: EU (occurrence: EU)
  Receive Date: 20250906
  Receipt Date: 20250906
  Transmission Date: 20251020
  Serious: Yes (Other)
  Sender: ACCORD
  Company Number: None

PATIENT
  Age: 68 Year
  Sex: Male
  Weight: 101 kg

DRUGS (3)
  1. FLUOROURACIL [Suspect]
     Active Substance: FLUOROURACIL
     Indication: Colon cancer
     Dates: start: 20210921, end: 20210922
  2. IRINOTECAN [Suspect]
     Active Substance: IRINOTECAN
     Indication: Colon cancer
     Dates: start: 20210921, end: 20210921
  3. FLUOROURACIL [Suspect]
     Active Substance: FLUOROURACIL
     Indication: Colon cancer
     Dates: start: 20210921, end: 20210923

REACTIONS (2)
  - Hyperkalaemia [Recovered/Resolved]
  - Hypercreatininaemia [Recovered/Resolved]

NARRATIVE: CASE EVENT DATE: 20211103
